FAERS Safety Report 4863024-6 (Version None)
Quarter: 2005Q4

REPORT INFORMATION
  Report Type: 
  Country: None (occurrence: None)
  Receive Date: 20051221
  Receipt Date: 20051215
  Transmission Date: 20060501
  Serious: Yes (Death)
  Sender: FDA-Public Use
  Company Number: FR-MERCK-0512FRA00069

PATIENT
  Age: 83 Year
  Sex: Female

DRUGS (9)
  1. STROMECTOL [Suspect]
     Indication: PROPHYLAXIS
     Route: 048
     Dates: start: 20051122, end: 20051122
  2. FUROSEMIDE [Concomitant]
     Indication: HYPERTENSION
     Route: 048
     Dates: end: 20051127
  3. ZOLPIDEM TARTRATE [Concomitant]
     Indication: INSOMNIA
     Route: 048
     Dates: end: 20051127
  4. ASPIRIN [Concomitant]
     Route: 048
     Dates: end: 20051127
  5. PREDNISOLONE SODIUM METASULFOBENZOATE [Concomitant]
     Indication: ECZEMA
     Route: 048
     Dates: end: 20051127
  6. FLECAINIDE ACETATE [Concomitant]
     Indication: ARRHYTHMIA
     Route: 048
     Dates: end: 20051127
  7. OMEPRAZOLE [Concomitant]
     Route: 048
     Dates: end: 20051127
  8. FLUTICASONE PROPIONATE AND SALMETEROL XINAFOATE [Concomitant]
     Indication: CHRONIC OBSTRUCTIVE PULMONARY DISEASE
     Route: 055
     Dates: end: 20051127
  9. LORATADINE [Concomitant]
     Indication: CHRONIC OBSTRUCTIVE PULMONARY DISEASE
     Route: 048
     Dates: end: 20051127

REACTIONS (1)
  - DEATH [None]
